FAERS Safety Report 8980109 (Version 1)
Quarter: 2012Q4

REPORT INFORMATION
  Report Type: 
  Country: DE (occurrence: DE)
  Receive Date: 20121221
  Receipt Date: 20121221
  Transmission Date: 20130627
  Serious: Yes (Other)
  Sender: FDA-Public Use
  Company Number: GXKR2012DE003885

PATIENT

DRUGS (1)
  1. CLARITHROMYCIN [Suspect]

REACTIONS (7)
  - Respiratory disorder [Recovered/Resolved]
  - Sense of oppression [Recovered/Resolved]
  - Paraesthesia [Recovered/Resolved]
  - Dizziness [Recovered/Resolved]
  - Palpitations [Recovered/Resolved]
  - Panic attack [Recovered/Resolved]
  - Tinnitus [Recovered/Resolved]
